FAERS Safety Report 6673329-4 (Version None)
Quarter: 2010Q2

REPORT INFORMATION
  Report Type: 
  Country: None (occurrence: None)
  Receive Date: 20100408
  Receipt Date: 20100329
  Transmission Date: 20101027
  Serious: Yes (Disabling)
  Sender: FDA-Public Use
  Company Number: US-JNJFOC-20080601568

PATIENT
  Sex: Male
  Weight: 79.38 kg

DRUGS (29)
  1. INFLIXIMAB [Suspect]
     Indication: CROHN'S DISEASE
     Route: 042
  2. INFLIXIMAB [Suspect]
     Route: 042
  3. INFLIXIMAB [Suspect]
     Route: 042
  4. INFLIXIMAB [Suspect]
     Route: 042
  5. INFLIXIMAB [Suspect]
     Route: 042
  6. INFLIXIMAB [Suspect]
     Route: 042
  7. INFLIXIMAB [Suspect]
     Route: 042
  8. INFLIXIMAB [Suspect]
     Route: 042
  9. INFLIXIMAB [Suspect]
     Route: 042
  10. INFLIXIMAB [Suspect]
     Route: 042
  11. INFLIXIMAB [Suspect]
     Route: 042
  12. INFLIXIMAB [Suspect]
     Route: 042
  13. INFLIXIMAB [Suspect]
     Route: 042
  14. INFLIXIMAB [Suspect]
     Route: 042
  15. INFLIXIMAB [Suspect]
     Route: 042
  16. INFLIXIMAB [Suspect]
     Route: 042
  17. INFLIXIMAB [Suspect]
     Route: 042
  18. INFLIXIMAB [Suspect]
     Route: 042
  19. INFLIXIMAB [Suspect]
     Route: 042
  20. INFLIXIMAB [Suspect]
     Route: 042
  21. INFLIXIMAB [Suspect]
     Dosage: 4 INFUSIONS PRIOR TO BASELINE (DATES AND DOSES NOT REPORTED)
     Route: 042
  22. INFLIXIMAB [Suspect]
     Route: 042
  23. INFLIXIMAB [Suspect]
     Route: 042
  24. INFLIXIMAB [Suspect]
     Route: 042
  25. INFLIXIMAB [Suspect]
     Route: 042
  26. INFLIXIMAB [Suspect]
     Route: 042
  27. MERCAPTOPURINE [Suspect]
     Indication: CROHN'S DISEASE
  28. MESALAMINE [Concomitant]
     Indication: CROHN'S DISEASE
  29. FOLIC ACID [Concomitant]

REACTIONS (2)
  - PLEURAL EFFUSION [None]
  - PULMONARY TUBERCULOSIS [None]
